FAERS Safety Report 24725573 (Version 4)
Quarter: 2025Q3

REPORT INFORMATION
  Report Type: Spontaneous
  Country: US (occurrence: US)
  Receive Date: 20241212
  Receipt Date: 20250813
  Transmission Date: 20251021
  Serious: No
  Sender: SANOFI AVENTIS
  Company Number: US-SA-2024SA365695

PATIENT
  Age: 62 Year
  Sex: Female

DRUGS (2)
  1. DUPIXENT [Suspect]
     Active Substance: DUPILUMAB
     Indication: Chronic obstructive pulmonary disease
     Route: 058
     Dates: start: 202411, end: 202411
  2. DUPIXENT [Suspect]
     Active Substance: DUPILUMAB
     Dosage: 300 MG, QOW
     Route: 058
     Dates: start: 202411

REACTIONS (15)
  - Sputum discoloured [Unknown]
  - Rhinorrhoea [Unknown]
  - Dyspnoea exertional [Unknown]
  - Productive cough [Recovered/Resolved]
  - Secretion discharge [Unknown]
  - Weight decreased [Unknown]
  - Upper-airway cough syndrome [Unknown]
  - Dyspnoea [Unknown]
  - Cough [Recovering/Resolving]
  - Dental implantation [Unknown]
  - Mouth ulceration [Unknown]
  - Eating disorder [Unknown]
  - Incorrect dosage administered [Unknown]
  - Cystitis [Recovered/Resolved]
  - Chronic obstructive pulmonary disease [Recovering/Resolving]

NARRATIVE: CASE EVENT DATE: 20240101
